FAERS Safety Report 6927656-3 (Version None)
Quarter: 2010Q3

REPORT INFORMATION
  Report Type: 
  Country: None (occurrence: None)
  Receive Date: 20100817
  Receipt Date: 20100806
  Transmission Date: 20110219
  Serious: Yes (Hospitalization)
  Sender: FDA-Public Use
  Company Number: US-SANOFI-AVENTIS-2010SA046943

PATIENT
  Sex: Male

DRUGS (10)
  1. MEPREDNISONE [Suspect]
     Indication: SYSTEMIC LUPUS ERYTHEMATOSUS
     Dosage: WEEKLY PULSE -MAXIMUM 1 GRAM
     Route: 065
  2. MEPREDNISONE [Suspect]
     Route: 042
  3. MEPREDNISONE [Suspect]
     Route: 042
  4. MEPREDNISONE [Suspect]
     Dosage: IMMUNOSUPPRESSIVE MEDICATIONS WERE TAPERED OVER SUBSEQUENT DAYS
     Route: 065
  5. PREDNISONE [Suspect]
     Indication: SYSTEMIC LUPUS ERYTHEMATOSUS
     Route: 048
  6. PREDNISONE [Suspect]
     Route: 065
  7. CYCLOPHOSPHAMIDE [Suspect]
     Indication: SYSTEMIC LUPUS ERYTHEMATOSUS
     Route: 065
  8. CYCLOPHOSPHAMIDE [Suspect]
     Route: 065
  9. HYDROXYCHLOROQUINE [Suspect]
     Route: 048
  10. TACROLIMUS [Suspect]
     Indication: SYSTEMIC LUPUS ERYTHEMATOSUS
     Route: 042

REACTIONS (8)
  - ABDOMINAL PAIN [None]
  - ABDOMINAL RIGIDITY [None]
  - DIABETES MELLITUS [None]
  - MUCORMYCOSIS [None]
  - PERITONITIS BACTERIAL [None]
  - PULMONARY HAEMORRHAGE [None]
  - SEPTIC SHOCK [None]
  - VOMITING [None]
